FAERS Safety Report 7804555-6 (Version None)
Quarter: 2011Q4

REPORT INFORMATION
  Report Type: 
  Country: None (occurrence: None)
  Receive Date: 20111010
  Receipt Date: 20111005
  Transmission Date: 20120403
  Serious: Yes (Death)
  Sender: FDA-Public Use
  Company Number: PHEH2011US06038

PATIENT
  Age: 56 Year
  Sex: Male

DRUGS (1)
  1. GLEEVEC [Suspect]
     Indication: MULTIPLE MYELOMA
     Dosage: 400 MG DAILY
     Route: 048
     Dates: start: 20110804, end: 20110914

REACTIONS (1)
  - DEATH [None]
